FAERS Safety Report 5500690-6 (Version None)
Quarter: 2007Q4

REPORT INFORMATION
  Report Type: 
  Country: None (occurrence: None)
  Receive Date: 20071025
  Receipt Date: 20071017
  Transmission Date: 20080405
  Serious: Yes (Hospitalization)
  Sender: FDA-Public Use
  Company Number: 2007-04700

PATIENT

DRUGS (1)
  1. HYDROXYCHLOROQUINE SULFATE [Suspect]
     Indication: DRUG USE FOR UNKNOWN INDICATION
     Dosage: ORAL
     Route: 048

REACTIONS (6)
  - JAUNDICE [None]
  - LIVER FUNCTION TEST ABNORMAL [None]
  - PAIN [None]
  - PERICARDIAL EFFUSION [None]
  - PLEURAL EFFUSION [None]
  - URINARY TRACT INFECTION [None]
